FAERS Safety Report 8915297 (Version 1)
Quarter: 2012Q4

REPORT INFORMATION
  Report Type: 
  Country: US (occurrence: US)
  Receive Date: 20121119
  Receipt Date: 20121119
  Transmission Date: 20130627
  Serious: No
  Sender: FDA-Public Use
  Company Number: US-B.I. PHARMACEUTICALS,INC./RIDGEFIELD-2012-BI-00508BP

PATIENT
  Age: 90 None
  Sex: Female
  Weight: 46 kg

DRUGS (2)
  1. SPIRIVA [Suspect]
     Indication: CHRONIC OBSTRUCTIVE PULMONARY DISEASE
     Dosage: 18 mcg
     Route: 055
     Dates: start: 201210
  2. RESCUE INHALER [Concomitant]
     Indication: DYSPNOEA

REACTIONS (2)
  - Dyspnoea [Not Recovered/Not Resolved]
  - Incorrect route of drug administration [Recovered/Resolved]
